FAERS Safety Report 21484401 (Version 1)
Quarter: 2022Q4

REPORT INFORMATION
  Report Type: Spontaneous
  Country: US (occurrence: US)
  Receive Date: 20221020
  Receipt Date: 20221020
  Transmission Date: 20230113
  Serious: No
  Sender: FDA-Public Use
  Company Number: US-UCBSA-2022052474

PATIENT
  Age: 30 Year
  Sex: Female

DRUGS (1)
  1. FINTEPLA [Suspect]
     Active Substance: FENFLURAMINE
     Indication: Product used for unknown indication
     Dosage: 4.5 MILLILITER, 2X/DAY (BID)
     Dates: start: 20220629, end: 20220824

REACTIONS (4)
  - Vomiting [Unknown]
  - Hyperhidrosis [Unknown]
  - Muscle tightness [Unknown]
  - Sleep disorder [Unknown]

NARRATIVE: CASE EVENT DATE: 20220801
